FAERS Safety Report 7878880-7 (Version None)
Quarter: 2011Q4

REPORT INFORMATION
  Report Type: 
  Country: None (occurrence: None)
  Receive Date: 20111101
  Receipt Date: 20111021
  Transmission Date: 20120403
  Serious: Yes (Other)
  Sender: FDA-Public Use
  Company Number: FR-SANOFI-AVENTIS-2011SA070590

PATIENT
  Age: 69 Year
  Sex: Female
  Weight: 69.5 kg

DRUGS (2)
  1. KAYEXALATE [Suspect]
     Route: 048
  2. DEPAKOTE [Concomitant]
     Route: 048

REACTIONS (2)
  - INTENTIONAL OVERDOSE [None]
  - SUICIDE ATTEMPT [None]
